FAERS Safety Report 15625025 (Version 1)
Quarter: 2018Q4

REPORT INFORMATION
  Report Type: Report from Study
  Country: GB (occurrence: GB)
  Receive Date: 20181116
  Receipt Date: 20181116
  Transmission Date: 20190205
  Serious: Yes (Other)
  Sender: FDA-Public Use
  Company Number: PHHY2018GB050777

PATIENT
  Age: 47 Year
  Sex: Male

DRUGS (9)
  1. FOLIC ACID. [Concomitant]
     Active Substance: FOLIC ACID
     Indication: PSORIATIC ARTHROPATHY
     Dosage: 5 MG, UNK
     Route: 048
  2. IBUPROFEN. [Concomitant]
     Active Substance: IBUPROFEN
     Indication: PRODUCT USED FOR UNKNOWN INDICATION
     Route: 065
  3. COSENTYX [Suspect]
     Active Substance: SECUKINUMAB
     Indication: PSORIATIC ARTHROPATHY
     Dosage: UNK, QW
     Route: 058
     Dates: start: 20180515
  4. IRON [Concomitant]
     Active Substance: IRON
     Indication: PRODUCT USED FOR UNKNOWN INDICATION
     Route: 065
  5. METHOTREXATE. [Concomitant]
     Active Substance: METHOTREXATE
     Indication: PSORIATIC ARTHROPATHY
     Dosage: 25 MG, QW
     Route: 048
  6. METHOTREXATE. [Concomitant]
     Active Substance: METHOTREXATE
     Dosage: UNK
     Route: 065
     Dates: start: 201808
  7. OMEPRAZOLE. [Concomitant]
     Active Substance: OMEPRAZOLE
     Indication: PRODUCT USED FOR UNKNOWN INDICATION
     Route: 065
  8. PREDNISOLONE. [Concomitant]
     Active Substance: PREDNISOLONE
     Indication: PSORIATIC ARTHROPATHY
     Dosage: 8 MG, QD
     Route: 048
  9. AFINITOR [Suspect]
     Active Substance: EVEROLIMUS
     Indication: BREAST CANCER
     Route: 065

REACTIONS (24)
  - Pneumonitis [Unknown]
  - Mucosal inflammation [Unknown]
  - Basophil count increased [Unknown]
  - Hyperkeratosis [Unknown]
  - White blood cell count decreased [Unknown]
  - Haematocrit decreased [Unknown]
  - Lymphocyte count decreased [Unknown]
  - Pain [Unknown]
  - Mobility decreased [Unknown]
  - Skin oedema [Unknown]
  - Haemoglobin decreased [Unknown]
  - Necrosis [Unknown]
  - Skin hyperplasia [Unknown]
  - Eosinophil count decreased [Unknown]
  - Rash [Unknown]
  - Platelet count decreased [Unknown]
  - Vasculitic ulcer [Recovering/Resolving]
  - Monocyte count decreased [Unknown]
  - Oedema peripheral [Unknown]
  - Neutrophil count increased [Unknown]
  - Vasculitis [Unknown]
  - Toxicity to various agents [Unknown]
  - Polyarteritis nodosa [Unknown]
  - Red blood cell count decreased [Unknown]

NARRATIVE: CASE EVENT DATE: 201808
